FAERS Safety Report 13219926 (Version 1)
Quarter: 2017Q1

REPORT INFORMATION
  Report Type: Report from Study
  Country: DE (occurrence: DE)
  Receive Date: 20170210
  Receipt Date: 20170210
  Transmission Date: 20170428
  Serious: Yes (Other)
  Sender: FDA-Public Use
  Company Number: DE-BIOGEN-2017BI00355874

PATIENT
  Age: 36 Year
  Sex: Female

DRUGS (1)
  1. AVONEX [Suspect]
     Active Substance: INTERFERON BETA-1A
     Indication: MULTIPLE SCLEROSIS
     Route: 030
     Dates: start: 20101001, end: 20160602

REACTIONS (3)
  - Amniotic fluid volume decreased [Recovered/Resolved]
  - Maternal exposure during pregnancy [Unknown]
  - Premature separation of placenta [Recovered/Resolved]

NARRATIVE: CASE EVENT DATE: 20170121
